FAERS Safety Report 5974001-6 (Version None)
Quarter: 2008Q4

REPORT INFORMATION
  Report Type: 
  Country: None (occurrence: None)
  Receive Date: 20081125
  Receipt Date: 20081110
  Transmission Date: 20090506
  Serious: Yes (Hospitalization)
  Sender: FDA-Public Use
  Company Number: 2008AL011715

PATIENT
  Age: 74 Year
  Sex: Male

DRUGS (2)
  1. TICLOPIDINE HCL [Suspect]
     Indication: CORONARY ARTERIAL STENT INSERTION
     Dosage: 200 MG;QD
  2. ASPIRIN [Concomitant]

REACTIONS (1)
  - IN-STENT CORONARY ARTERY RESTENOSIS [None]
